FAERS Safety Report 5088705-3 (Version None)
Quarter: 2006Q3

REPORT INFORMATION
  Report Type: 
  Country: None (occurrence: None)
  Receive Date: 20060822
  Receipt Date: 20060329
  Transmission Date: 20061208
  Serious: Yes (Hospitalization)
  Sender: FDA-Public Use
  Company Number: CH200603007265

PATIENT
  Age: 91 Year
  Sex: Female
  Weight: 65 kg

DRUGS (3)
  1. F1J-EW-SBCC EUROPEAN SAFETY - EFFICACY S(DULOXETINE HYDROCHLORIDE) CAP [Suspect]
     Indication: STRESS URINARY INCONTINENCE
     Dosage: SEE IMAGE
     Route: 048
     Dates: start: 20031125, end: 20060323
  2. F1J-EW-SBCC EUROPEAN SAFETY - EFFICACY S(DULOXETINE HYDROCHLORIDE) CAP [Suspect]
     Indication: STRESS URINARY INCONTINENCE
     Dosage: SEE IMAGE
     Route: 048
     Dates: start: 20060321, end: 20060323
  3. MADOPAR (BENSERAZIDE HYDROCHLORIDE, LEVODOPA) [Concomitant]

REACTIONS (20)
  - ANGIOPATHY [None]
  - ANOREXIA [None]
  - AORTIC ANEURYSM [None]
  - ARTERIOSCLEROSIS [None]
  - CARDIAC DISORDER [None]
  - COR PULMONALE CHRONIC [None]
  - DEMENTIA [None]
  - FATIGUE [None]
  - GASTRIC CANCER [None]
  - GASTRITIS [None]
  - HELICOBACTER GASTRITIS [None]
  - INGUINAL HERNIA [None]
  - METASTASES TO LIVER [None]
  - METASTASES TO LYMPH NODES [None]
  - METASTATIC GASTRIC CANCER [None]
  - NAUSEA [None]
  - POLYNEUROPATHY [None]
  - RESTLESS LEGS SYNDROME [None]
  - SOMNOLENCE [None]
  - VOMITING IN PREGNANCY [None]
